FAERS Safety Report 5252404-5 (Version None)
Quarter: 2007Q1

REPORT INFORMATION
  Report Type: 
  Country: None (occurrence: None)
  Receive Date: 20070301
  Receipt Date: 20061129
  Transmission Date: 20070707
  Serious: Yes (Other)
  Sender: FDA-Public Use
  Company Number: US-BRISTOL-MYERS SQUIBB COMPANY-13594247

PATIENT
  Age: 68 Year
  Sex: Male

DRUGS (1)
  1. TAXOL [Suspect]
     Indication: NEOPLASM MALIGNANT
     Route: 042
     Dates: start: 20061128, end: 20061128

REACTIONS (1)
  - EXTRAVASATION [None]
